FAERS Safety Report 7806933-8 (Version None)
Quarter: 2011Q4

REPORT INFORMATION
  Report Type: 
  Country: None (occurrence: None)
  Receive Date: 20111011
  Receipt Date: 20110907
  Transmission Date: 20120403
  Serious: No
  Sender: FDA-Public Use
  Company Number: US-MYLANLABS-2011S1018875

PATIENT
  Age: 69 Year
  Sex: Female

DRUGS (1)
  1. LATANOPROST [Suspect]
     Indication: GLAUCOMA
     Dosage: 1 DROP IN EACH EYE QD
     Route: 047
     Dates: start: 20110701

REACTIONS (2)
  - DRUG EFFECT DECREASED [None]
  - INTRAOCULAR PRESSURE INCREASED [None]
